FAERS Safety Report 6869615-5 (Version None)
Quarter: 2010Q3

REPORT INFORMATION
  Report Type: 
  Country: None (occurrence: None)
  Receive Date: 20100722
  Receipt Date: 20080805
  Transmission Date: 20110219
  Serious: No
  Sender: FDA-Public Use
  Company Number: US-PFIZER INC-2008065754

PATIENT
  Sex: Female
  Weight: 93.181 kg

DRUGS (6)
  1. CHANTIX [Suspect]
     Indication: SMOKING CESSATION THERAPY
     Dates: start: 20080701, end: 20080728
  2. ZOCOR [Concomitant]
  3. PROZAC [Concomitant]
  4. PRILOSEC [Concomitant]
  5. ANTIHYPERTENSIVES [Concomitant]
     Indication: HYPERTENSION
  6. GEZOR [Concomitant]

REACTIONS (2)
  - HEADACHE [None]
  - TREMOR [None]
